FAERS Safety Report 8712366 (Version 3)
Quarter: 2012Q4

REPORT INFORMATION
  Report Type: 
  Country: US (occurrence: US)
  Receive Date: 20120808
  Receipt Date: 20121011
  Transmission Date: 20130627
  Serious: No
  Sender: FDA-Public Use
  Company Number: US-BIOGENIDEC-2012BI029546

PATIENT
  Age: 44 None
  Sex: Female

DRUGS (2)
  1. TYSABRI [Suspect]
     Indication: MULTIPLE SCLEROSIS
     Route: 042
     Dates: start: 20120402, end: 20120730
  2. AVONEX [Concomitant]
     Indication: MULTIPLE SCLEROSIS
     Route: 030

REACTIONS (6)
  - Swelling [Recovered/Resolved]
  - Vomiting [Recovered/Resolved]
  - Increased tendency to bruise [Recovered/Resolved]
  - Haemorrhagic diathesis [Recovered/Resolved]
  - Nausea [Unknown]
  - Headache [Not Recovered/Not Resolved]
